FAERS Safety Report 4846605-5 (Version None)
Quarter: 2005Q4

REPORT INFORMATION
  Report Type: 
  Country: None (occurrence: None)
  Receive Date: 20051202
  Receipt Date: 20051118
  Transmission Date: 20060501
  Serious: Yes (Hospitalization)
  Sender: FDA-Public Use
  Company Number: DEU-2005-0001497

PATIENT
  Age: 85 Year
  Sex: Female
  Weight: 27.2158 kg

DRUGS (9)
  1. OXYCODONE HCL [Suspect]
     Indication: PAIN
     Dosage: SEE IMAGE
  2. ENALAPRIL MALEATE [Concomitant]
  3. TRIMIPRAMINE MALEATE [Concomitant]
  4. DIPYRONE TAB [Concomitant]
  5. HYPNOTICS AND SEDATIVES [Concomitant]
  6. ESIDRIX [Concomitant]
  7. PREDNISONE TAB [Concomitant]
  8. SODIUM [Concomitant]
  9. LANITOP (METILDIGOXIN) [Concomitant]

REACTIONS (5)
  - ABDOMINAL ADHESIONS [None]
  - ABDOMINAL PAIN [None]
  - ILEUS [None]
  - INFREQUENT BOWEL MOVEMENTS [None]
  - VOMITING [None]
